FAERS Safety Report 25466312 (Version 1)
Quarter: 2025Q2

REPORT INFORMATION
  Report Type: Spontaneous
  Country: US (occurrence: US)
  Receive Date: 20250623
  Receipt Date: 20250623
  Transmission Date: 20250716
  Serious: No
  Sender: STRIDES
  Company Number: None

PATIENT
  Age: 68 Year
  Sex: Male

DRUGS (6)
  1. GABAPENTIN [Suspect]
     Active Substance: GABAPENTIN
     Indication: Neuralgia
     Route: 065
  2. GABAPENTIN [Suspect]
     Active Substance: GABAPENTIN
     Route: 065
  3. GABAPENTIN [Suspect]
     Active Substance: GABAPENTIN
     Route: 065
  4. GABAPENTIN [Suspect]
     Active Substance: GABAPENTIN
     Route: 065
  5. GABAPENTIN [Suspect]
     Active Substance: GABAPENTIN
     Route: 065
  6. GABAPENTIN [Suspect]
     Active Substance: GABAPENTIN
     Route: 065

REACTIONS (7)
  - Balance disorder [Recovering/Resolving]
  - Brain fog [Recovering/Resolving]
  - Insomnia [Recovering/Resolving]
  - Somnolence [Recovered/Resolved]
  - Fatigue [Recovering/Resolving]
  - Back pain [Recovering/Resolving]
  - Off label use [Unknown]
